FAERS Safety Report 21687474 (Version 1)
Quarter: 2022Q4

REPORT INFORMATION
  Report Type: Other
  Country: DE (occurrence: None)
  Receive Date: 20221206
  Receipt Date: 20221206
  Transmission Date: 20230113
  Serious: No
  Sender: FDA-Public Use
  Company Number: DE-ROCHE-3174563

PATIENT
  Age: 29 Year
  Sex: Female
  Weight: 64 kg

DRUGS (2)
  1. OCRELIZUMAB [Suspect]
     Active Substance: OCRELIZUMAB
     Indication: Relapsing multiple sclerosis
     Route: 042
     Dates: start: 20220203
  2. COMIRNATY [Concomitant]
     Active Substance: TOZINAMERAN
     Route: 030
     Dates: start: 20211201, end: 20211201

REACTIONS (2)
  - Lymphopenia [Recovered/Resolved]
  - Coronavirus infection [Recovered/Resolved]

NARRATIVE: CASE EVENT DATE: 20220802
